FAERS Safety Report 9029698 (Version 2)
Quarter: 2013Q1

REPORT INFORMATION
  Report Type: Spontaneous
  Country: IT (occurrence: IT)
  Receive Date: 20130124
  Receipt Date: 20130304
  Transmission Date: 20140127
  Serious: Yes (Hospitalization, Other)
  Sender: FDA-Public Use
  Company Number: IT-BRISTOL-MYERS SQUIBB COMPANY-17254335

PATIENT
  Age: 86 Year
  Sex: Male

DRUGS (7)
  1. COUMADIN TABS 5 MG [Suspect]
     Route: 048
     Dates: start: 20120101, end: 20121221
  2. SERTRALINE HCL [Interacting]
     Indication: DEPRESSION
     Dosage: RECENT DOSE^27DEC12012
     Route: 048
     Dates: start: 20121215
  3. AMIODAR [Interacting]
     Dosage: 1 DF:1 DOSAGE UNIT OF AMIODAR TABS 200MG ?RECENT DOSE:27DEC2012
     Route: 048
     Dates: start: 20120101
  4. LEVOCARNITINE [Concomitant]
  5. DIAMOX [Concomitant]
     Dosage: TABS 250MG
  6. LUVION [Concomitant]
     Dosage: CAPS 100MG
  7. LASIX [Concomitant]
     Dosage: LASIX TABS 25MG

REACTIONS (4)
  - Haematuria [Recovered/Resolved]
  - International normalised ratio increased [Recovered/Resolved]
  - Renal impairment [Unknown]
  - Drug interaction [Unknown]
